FAERS Safety Report 9663491 (Version 2)
Quarter: 2013Q4

REPORT INFORMATION
  Report Type: Spontaneous
  Country: JP (occurrence: JP)
  Receive Date: 20131101
  Receipt Date: 20131204
  Transmission Date: 20140711
  Serious: Yes (Other)
  Sender: FDA-Public Use
  Company Number: JP-AMGEN-JPNSP2013076845

PATIENT
  Age: 71 Year
  Sex: Female

DRUGS (2)
  1. ENBREL [Suspect]
     Indication: RHEUMATOID ARTHRITIS
     Dosage: 25 MG, UNK
     Route: 058
  2. METHOTREXATE [Concomitant]
     Dosage: UNK

REACTIONS (3)
  - Musculoskeletal stiffness [Recovered/Resolved]
  - Nervousness [Recovered/Resolved]
  - Multiple sclerosis [Recovered/Resolved]
